FAERS Safety Report 15982923 (Version 1)
Quarter: 2019Q1

REPORT INFORMATION
  Report Type: Spontaneous
  Country: US (occurrence: US)
  Receive Date: 20190219
  Receipt Date: 20190219
  Transmission Date: 20190418
  Serious: Yes (Hospitalization, Other)
  Sender: FDA-Public Use
  Company Number: US-MYLANLABS-2019M1014242

PATIENT

DRUGS (1)
  1. FENTANYL TRANSDERMAL SYSTEM [Suspect]
     Active Substance: FENTANYL
     Indication: PRODUCT USED FOR UNKNOWN INDICATION
     Dosage: UNK
     Route: 062

REACTIONS (8)
  - Dehydration [Recovered/Resolved]
  - Wrong technique in product usage process [Recovered/Resolved]
  - Blood potassium decreased [Recovered/Resolved]
  - Eating disorder [Recovered/Resolved]
  - Hypovitaminosis [Recovered/Resolved]
  - Loss of consciousness [Recovered/Resolved]
  - Product physical issue [Unknown]
  - Sleep disorder [Recovered/Resolved]

NARRATIVE: CASE EVENT DATE: 2018
